FAERS Safety Report 15640858 (Version 1)
Quarter: 2018Q4

REPORT INFORMATION
  Report Type: Spontaneous
  Country: US (occurrence: US)
  Receive Date: 20181120
  Receipt Date: 20181120
  Transmission Date: 20190205
  Serious: No
  Sender: FDA-Public Use
  Company Number: US-SA-2018SA318802

PATIENT
  Sex: Female

DRUGS (1)
  1. WELCHOL [Suspect]
     Active Substance: COLESEVELAM HYDROCHLORIDE
     Indication: BILE OUTPUT INCREASED
     Dosage: 625 MG, BID
     Route: 048

REACTIONS (2)
  - No adverse event [Recovered/Resolved]
  - Off label use [Recovered/Resolved]
